FAERS Safety Report 18842667 (Version 1)
Quarter: 2021Q1

REPORT INFORMATION
  Report Type: Report from Study
  Country: JP (occurrence: JP)
  Receive Date: 20210203
  Receipt Date: 20210203
  Transmission Date: 20210419
  Serious: Yes (Hospitalization, Other)
  Sender: FDA-Public Use
  Company Number: JP-JNJFOC-20210138296

PATIENT
  Sex: Male

DRUGS (68)
  1. MACITENTAN [Suspect]
     Active Substance: MACITENTAN
     Indication: PULMONARY ARTERIAL HYPERTENSION
     Route: 048
     Dates: start: 20160310
  2. MACITENTAN [Suspect]
     Active Substance: MACITENTAN
     Route: 048
     Dates: start: 20160710, end: 20160711
  3. MACITENTAN [Suspect]
     Active Substance: MACITENTAN
     Route: 048
     Dates: start: 20160712, end: 201609
  4. POTASSIUM CHLORIDE. [Concomitant]
     Active Substance: POTASSIUM CHLORIDE
     Indication: BLOOD POTASSIUM ABNORMAL
     Dosage: 1200?3600MG
     Route: 048
  5. POTASSIUM IODIDE. [Concomitant]
     Active Substance: POTASSIUM IODIDE
     Dosage: 150~100MG/A
     Route: 048
     Dates: start: 20180307, end: 20180404
  6. POTASSIUM IODIDE. [Concomitant]
     Active Substance: POTASSIUM IODIDE
     Dosage: 150~100MG/A
     Route: 048
     Dates: start: 20180405, end: 20180502
  7. FEXOFENADINE HYDROCHLORIDE OD [Concomitant]
     Active Substance: FEXOFENADINE HYDROCHLORIDE
     Indication: PROPHYLAXIS
     Route: 048
     Dates: start: 20171211
  8. TRAMADOL/APAP [Concomitant]
     Active Substance: ACETAMINOPHEN\TRAMADOL
     Indication: PROPHYLAXIS
     Route: 048
     Dates: start: 20171221, end: 20180502
  9. EPOPROSTENOL ACT [Suspect]
     Active Substance: EPOPROSTENOL
     Dosage: 54.81?63.0NG/KG/MIN
     Route: 041
     Dates: start: 20170111, end: 20170125
  10. EPOPROSTENOL ACT [Suspect]
     Active Substance: EPOPROSTENOL
     Dosage: 63.0?68.5NG/KG/MIN
     Route: 041
     Dates: start: 20170125, end: 20170502
  11. EPOPROSTENOL ACT [Suspect]
     Active Substance: EPOPROSTENOL
     Dosage: 82.5NG/KG/MIN
     Route: 041
  12. LAC?B [Concomitant]
     Active Substance: BIFIDOBACTERIUM SPP.
     Indication: PROPHYLAXIS
     Route: 048
     Dates: start: 20160406, end: 20160414
  13. LAC?B [Concomitant]
     Active Substance: BIFIDOBACTERIUM SPP.
     Indication: PROPHYLAXIS
     Route: 048
     Dates: start: 20160415, end: 20160419
  14. FUROSEMIDE. [Concomitant]
     Active Substance: FUROSEMIDE
     Indication: RIGHT VENTRICULAR FAILURE
     Dosage: 10?80MG
     Route: 048
     Dates: start: 20160414
  15. SPIRONOLACTONE. [Concomitant]
     Active Substance: SPIRONOLACTONE
     Indication: RIGHT VENTRICULAR FAILURE
     Dosage: 12.5?37.5MG
     Route: 048
     Dates: start: 20160414, end: 20160427
  16. POTASSIUM CHLORIDE. [Concomitant]
     Active Substance: POTASSIUM CHLORIDE
     Indication: BLOOD POTASSIUM ABNORMAL
     Dosage: 600?3600MG
     Route: 048
     Dates: start: 20160428
  17. REVATIO [Concomitant]
     Active Substance: SILDENAFIL CITRATE
     Indication: PULMONARY ARTERIAL HYPERTENSION
     Route: 048
     Dates: start: 20160528, end: 20160930
  18. POTASSIUM IODIDE. [Concomitant]
     Active Substance: POTASSIUM IODIDE
     Indication: HYPERTHYROIDISM
     Dosage: 150?100MG
     Route: 048
     Dates: start: 20170619, end: 20171003
  19. POTASSIUM IODIDE. [Concomitant]
     Active Substance: POTASSIUM IODIDE
     Indication: HYPERTHYROIDISM
     Dosage: 150~100MG/A
     Route: 048
     Dates: start: 20171110, end: 20171207
  20. MERCAZOLE [THIAMAZOLE] [Concomitant]
     Active Substance: METHIMAZOLE
     Indication: HYPERTHYROIDISM
     Route: 048
     Dates: start: 20170727, end: 20170905
  21. RULID [Concomitant]
     Active Substance: ROXITHROMYCIN
     Indication: RASH
     Route: 048
     Dates: start: 20170803, end: 20170808
  22. TRAMADOL/APAP [Concomitant]
     Active Substance: ACETAMINOPHEN\TRAMADOL
     Route: 048
     Dates: start: 20180503
  23. EPOPROSTENOL ACT [Suspect]
     Active Substance: EPOPROSTENOL
     Dosage: 49.04NG/KG/MIN
     Route: 041
     Dates: start: 20160527, end: 20161012
  24. EPOPROSTENOL ACT [Suspect]
     Active Substance: EPOPROSTENOL
     Dosage: 50.48?54.81NG/KG/MIN
     Route: 041
     Dates: start: 20161012, end: 20161103
  25. EPOPROSTENOL ACT [Suspect]
     Active Substance: EPOPROSTENOL
     Dosage: 68.5?77.7NG/KG/MIN
     Route: 041
     Dates: start: 20170502, end: 20170622
  26. EPOPROSTENOL ACT [Suspect]
     Active Substance: EPOPROSTENOL
     Dosage: 77.7?82.5NG/KG/MIN
     Route: 041
     Dates: start: 20170622
  27. CEFTAZIDIME HYDRATE [Concomitant]
     Active Substance: CEFTAZIDIME
     Indication: DEVICE RELATED INFECTION
     Route: 042
     Dates: start: 20160709, end: 20160719
  28. KEFRAL [Concomitant]
     Active Substance: CEFACLOR
     Indication: DEVICE RELATED INFECTION
     Route: 048
     Dates: start: 20161012, end: 20161109
  29. NEXIUM [Concomitant]
     Active Substance: ESOMEPRAZOLE MAGNESIUM
     Indication: PROPHYLAXIS
     Route: 048
     Dates: start: 20161229
  30. FERROUS SULFATE. [Concomitant]
     Active Substance: FERROUS SULFATE
     Indication: ANAEMIA
     Route: 048
     Dates: start: 20180503
  31. MACITENTAN [Suspect]
     Active Substance: MACITENTAN
     Route: 048
     Dates: start: 20160927
  32. EPOPROSTENOL ACT [Suspect]
     Active Substance: EPOPROSTENOL
     Indication: PROPHYLAXIS
     Dosage: 0.32?49.04NG/KG/MIN
     Route: 041
     Dates: start: 20160328, end: 20160527
  33. SPIRONOLACTONE. [Concomitant]
     Active Substance: SPIRONOLACTONE
     Indication: RIGHT VENTRICULAR FAILURE
     Dosage: 25?50MG
     Route: 048
     Dates: start: 20160428
  34. SPIRONOLACTONE. [Concomitant]
     Active Substance: SPIRONOLACTONE
     Route: 048
  35. LEVOFLOXACIN HEMIHYDRATE [Concomitant]
     Active Substance: LEVOFLOXACIN
     Indication: DEVICE RELATED INFECTION
     Route: 048
     Dates: start: 20161003, end: 20161010
  36. CRAVIT [Concomitant]
     Active Substance: LEVOFLOXACIN
     Indication: DEVICE RELATED INFECTION
     Route: 048
     Dates: start: 20161109, end: 20161206
  37. SOLU?CORTEF [Concomitant]
     Active Substance: HYDROCORTISONE SODIUM SUCCINATE
     Indication: HYPERTHYROIDISM
     Dosage: 100?50MG
     Route: 042
     Dates: start: 20170616, end: 20170622
  38. GENTACIN [Concomitant]
     Active Substance: GENTAMICIN SULFATE
     Indication: DEVICE RELATED INFECTION
     Dosage: DOSE UNKNOWN, P.R.N
     Route: 061
     Dates: start: 20161109, end: 20161206
  39. MERCAZOLE [THIAMAZOLE] [Concomitant]
     Active Substance: METHIMAZOLE
     Route: 048
     Dates: start: 20180705
  40. SELBEX [Concomitant]
     Active Substance: TEPRENONE
     Indication: PROPHYLAXIS
     Route: 048
     Dates: start: 20171103
  41. TRAMADOL/APAP [Concomitant]
     Active Substance: ACETAMINOPHEN\TRAMADOL
     Indication: PROPHYLAXIS
     Dosage: P.R.N
     Route: 048
     Dates: start: 20171110, end: 20171220
  42. BIOFERMIN R [Concomitant]
     Active Substance: DIETARY SUPPLEMENT\PROBIOTICS
     Indication: PROPHYLAXIS
     Route: 048
     Dates: start: 20160707, end: 20160723
  43. POLARAMINE [Concomitant]
     Active Substance: DEXCHLORPHENIRAMINE MALEATE
     Indication: DRUG ERUPTION
     Route: 048
     Dates: start: 20160714, end: 20160714
  44. PIPERACILLIN AND TAZOBACTAM [Concomitant]
     Active Substance: PIPERACILLIN SODIUM\TAZOBACTAM SODIUM
     Indication: DEVICE RELATED INFECTION
     Route: 042
     Dates: start: 20161208, end: 20161213
  45. LOPEMIN [LOPERAMIDE HYDROCHLORIDE] [Concomitant]
     Active Substance: LOPERAMIDE HYDROCHLORIDE
     Route: 048
     Dates: start: 20170615
  46. CEFAZOLIN SODIUM. [Suspect]
     Active Substance: CEFAZOLIN SODIUM
     Indication: LOW CARDIAC OUTPUT SYNDROME
     Route: 042
     Dates: start: 20160706, end: 20160706
  47. ADCIRCA [Concomitant]
     Active Substance: TADALAFIL
     Route: 048
     Dates: start: 20160318
  48. FUROSEMIDE. [Concomitant]
     Active Substance: FUROSEMIDE
     Route: 048
  49. POTASSIUM IODIDE. [Concomitant]
     Active Substance: POTASSIUM IODIDE
     Dosage: 150~100MG/A
     Route: 048
     Dates: start: 20171208, end: 20180207
  50. CORTRIL [Concomitant]
     Active Substance: HYDROCORTISONE
     Indication: ADRENAL INSUFFICIENCY
     Route: 048
     Dates: start: 20170619, end: 20170726
  51. MEROPENEM. [Concomitant]
     Active Substance: MEROPENEM
     Indication: PROPHYLAXIS
     Route: 042
     Dates: start: 20170619, end: 20170622
  52. MERCAZOLE [THIAMAZOLE] [Concomitant]
     Active Substance: METHIMAZOLE
     Indication: HYPERTHYROIDISM
     Route: 048
     Dates: start: 20170906, end: 20180704
  53. EPOPROSTENOL ACT [Suspect]
     Active Substance: EPOPROSTENOL
     Dosage: 54.81NG/KG/MIN
     Route: 041
     Dates: start: 20161103, end: 20170111
  54. ADCIRCA [Concomitant]
     Active Substance: TADALAFIL
     Indication: PULMONARY ARTERIAL HYPERTENSION
     Dosage: 5?20MG
     Route: 048
     Dates: start: 20160311, end: 20160317
  55. REVATIO [Concomitant]
     Active Substance: SILDENAFIL CITRATE
     Indication: PULMONARY ARTERIAL HYPERTENSION
     Route: 048
     Dates: start: 20160527, end: 20160527
  56. CLINDAMYCIN. [Concomitant]
     Active Substance: CLINDAMYCIN
     Indication: DEVICE RELATED INFECTION
     Route: 042
     Dates: start: 20160707, end: 20160708
  57. PREDONINE [Concomitant]
     Active Substance: PREDNISOLONE
     Indication: HYPERTHYROIDISM
     Route: 048
     Dates: start: 20170616, end: 20170616
  58. FERROUS SULFATE. [Concomitant]
     Active Substance: FERROUS SULFATE
     Indication: ANAEMIA
     Route: 048
     Dates: start: 20170622, end: 20180502
  59. ALESION [Concomitant]
     Active Substance: EPINASTINE HYDROCHLORIDE
     Indication: RASH
     Route: 048
     Dates: start: 20170803
  60. DOBUTAMINE HYDROCHLORIDE. [Concomitant]
     Active Substance: DOBUTAMINE HYDROCHLORIDE
     Indication: LOW CARDIAC OUTPUT SYNDROME
     Dosage: 3?1G
     Route: 042
     Dates: start: 20160310, end: 20160413
  61. DOBUTAMINE HYDROCHLORIDE. [Concomitant]
     Active Substance: DOBUTAMINE HYDROCHLORIDE
     Indication: RIGHT VENTRICULAR FAILURE
     Dosage: 3?0.5G
     Route: 042
     Dates: start: 20171110, end: 20171221
  62. LOXONIN [Concomitant]
     Active Substance: LOXOPROFEN SODIUM
     Indication: PROPHYLAXIS
     Dosage: P.R.N
     Route: 048
     Dates: start: 20160310, end: 20160321
  63. BIOFERMIN R [Concomitant]
     Active Substance: DIETARY SUPPLEMENT\PROBIOTICS
     Indication: PROPHYLAXIS
     Route: 048
     Dates: start: 20160419, end: 20160422
  64. OXYGEN. [Concomitant]
     Active Substance: OXYGEN
     Dosage: DOSE UNKNOWN
     Route: 055
  65. KEFRAL [Concomitant]
     Active Substance: CEFACLOR
     Indication: PROPHYLAXIS
     Route: 048
     Dates: start: 20160907, end: 20160927
  66. TALION OD [Concomitant]
     Active Substance: BEPOTASTINE BESYLATE
     Indication: RASH
     Route: 048
     Dates: start: 20170725, end: 20170729
  67. LOPEMIN [LOPERAMIDE HYDROCHLORIDE] [Concomitant]
     Active Substance: LOPERAMIDE HYDROCHLORIDE
     Indication: DIARRHOEA
     Route: 048
     Dates: start: 20160509, end: 20160511
  68. LOPEMIN [LOPERAMIDE HYDROCHLORIDE] [Concomitant]
     Active Substance: LOPERAMIDE HYDROCHLORIDE
     Dosage: P.R.N
     Route: 048
     Dates: start: 20160512

REACTIONS (11)
  - Pulmonary arterial hypertension [Recovering/Resolving]
  - Drug-induced liver injury [Recovering/Resolving]
  - Rash [Recovered/Resolved]
  - Syncope [Recovered/Resolved]
  - Device related infection [Recovered/Resolved]
  - Adrenal insufficiency [Recovered/Resolved]
  - Drug eruption [Recovering/Resolving]
  - Right ventricular failure [Recovering/Resolving]
  - Diarrhoea [Recovering/Resolving]
  - Hyperthyroidism [Recovering/Resolving]
  - Anaemia [Recovering/Resolving]

NARRATIVE: CASE EVENT DATE: 20160509
